FAERS Safety Report 7702446-2 (Version None)
Quarter: 2011Q3

REPORT INFORMATION
  Report Type: 
  Country: None (occurrence: None)
  Receive Date: 20110823
  Receipt Date: 20110819
  Transmission Date: 20111222
  Serious: Yes (Death, Hospitalization)
  Sender: FDA-Public Use
  Company Number: BR-BRISTOL-MYERS SQUIBB COMPANY-15974553

PATIENT
  Age: 55 Year
  Sex: Male

DRUGS (1)
  1. IPILIMUMAB [Suspect]
     Indication: MALIGNANT MELANOMA
     Dosage: NO OF COURSES 2
     Route: 042
     Dates: start: 20110713, end: 20110803

REACTIONS (4)
  - HYPOCALCAEMIA [None]
  - NEOPLASM MALIGNANT [None]
  - HYPONATRAEMIA [None]
  - NEUROLOGICAL SYMPTOM [None]
